FAERS Safety Report 19104608 (Version 5)
Quarter: 2021Q2

REPORT INFORMATION
  Report Type: Spontaneous
  Country: FR (occurrence: FR)
  Receive Date: 20210408
  Receipt Date: 20210605
  Transmission Date: 20210717
  Serious: Yes (Life-Threatening, Hospitalization, Other)
  Sender: FDA-Public Use
  Company Number: FR-AUROBINDO-AUR-APL-2021-014334

PATIENT
  Age: 17 Year
  Sex: Male
  Weight: 66 kg

DRUGS (5)
  1. ATENOLOL FILM?COATED TABLET 50MG [Suspect]
     Active Substance: ATENOLOL
     Dosage: 90 DOSAGE FORM, 1 TOTAL
     Route: 048
  2. ATENOLOL FILM?COATED TABLET 50MG [Suspect]
     Active Substance: ATENOLOL
     Indication: PRODUCT USED FOR UNKNOWN INDICATION
     Dosage: UNK (90 TABLETS OF 50 MG)
     Route: 048
  3. AMLODIPINE [Suspect]
     Active Substance: AMLODIPINE BESYLATE
     Dosage: 90 DOSAGE FORM, 1 TOTAL
     Route: 048
  4. AMLODIPINE [Suspect]
     Active Substance: AMLODIPINE BESYLATE
     Indication: PRODUCT USED FOR UNKNOWN INDICATION
     Dosage: UNK (90 TABLETS OF 5 MG)
     Route: 065
  5. AMLODIPINE [Suspect]
     Active Substance: AMLODIPINE BESYLATE
     Indication: PRODUCT USED FOR UNKNOWN INDICATION
     Dosage: 90 DOSAGE FORM,1 TOTAL
     Route: 048

REACTIONS (9)
  - Atrioventricular block first degree [Recovered/Resolved]
  - Shock [Unknown]
  - Cardiogenic shock [Recovered/Resolved]
  - Hypotension [Recovered/Resolved]
  - Intentional overdose [Recovered/Resolved]
  - Toxicity to various agents [Recovered/Resolved]
  - Vasogenic cerebral oedema [Unknown]
  - Vasoplegia syndrome [Recovered/Resolved]
  - Somnolence [Recovered/Resolved]
